FAERS Safety Report 25211828 (Version 1)
Quarter: 2025Q2

REPORT INFORMATION
  Report Type: Spontaneous
  Country: PL (occurrence: PL)
  Receive Date: 20250418
  Receipt Date: 20250418
  Transmission Date: 20250716
  Serious: Yes (Hospitalization, Other)
  Sender: RANBAXY
  Company Number: PL-SUN PHARMACEUTICAL INDUSTRIES LTD-2025R1-504310

PATIENT
  Age: 73 Year
  Sex: Female

DRUGS (3)
  1. ASPIRIN [Suspect]
     Active Substance: ASPIRIN
     Indication: Chronic coronary syndrome
     Route: 065
  2. NEBIVOLOL [Suspect]
     Active Substance: NEBIVOLOL
     Indication: Chronic coronary syndrome
     Route: 065
  3. MOLSIDOMINE [Concomitant]
     Active Substance: MOLSIDOMINE
     Indication: Chronic coronary syndrome
     Route: 065

REACTIONS (1)
  - Therapy non-responder [Unknown]
